FAERS Safety Report 5613001-2 (Version None)
Quarter: 2008Q1

REPORT INFORMATION
  Report Type: 
  Country: None (occurrence: None)
  Receive Date: 20080204
  Receipt Date: 20080125
  Transmission Date: 20080703
  Serious: No
  Sender: FDA-Public Use
  Company Number: FR-PFIZER INC-2007099473

PATIENT
  Sex: Male
  Weight: 68 kg

DRUGS (1)
  1. SALAZOPYRINE [Suspect]
     Dosage: TEXT:4 TABLETS DAILY

REACTIONS (1)
  - LICHENIFICATION [None]
